FAERS Safety Report 9447361 (Version 1)
Quarter: 2013Q3

REPORT INFORMATION
  Report Type: Spontaneous
  Country: PL (occurrence: PL)
  Receive Date: 20130808
  Receipt Date: 20130808
  Transmission Date: 20140515
  Serious: Yes (Hospitalization)
  Sender: FDA-Public Use
  Company Number: PL-ROCHE-1258217

PATIENT
  Sex: Male
  Weight: 93 kg

DRUGS (2)
  1. COPEGUS [Suspect]
     Indication: HEPATITIS C
     Dosage: 2X600MG (TWICE A DAY 3 TABLETS 200MG)
     Route: 048
     Dates: start: 20110920, end: 20120716
  2. PEGASYS [Suspect]
     Indication: HEPATITIS C
     Route: 058
     Dates: start: 20110920, end: 20120716

REACTIONS (1)
  - Renal disorder [Recovered/Resolved with Sequelae]
